FAERS Safety Report 12539807 (Version 1)
Quarter: 2016Q3

REPORT INFORMATION
  Report Type: Spontaneous
  Country: FR (occurrence: FR)
  Receive Date: 20160708
  Receipt Date: 20160708
  Transmission Date: 20161109
  Serious: Yes (Other)
  Sender: FDA-Public Use
  Company Number: FR-ROCHE-1789707

PATIENT
  Age: 35 Year
  Sex: Female

DRUGS (7)
  1. LOVENOX [Concomitant]
     Active Substance: ENOXAPARIN SODIUM
     Dosage: FOR 6 WEEKS
     Route: 065
     Dates: start: 20151221
  2. LOXEN (FRANCE) [Suspect]
     Active Substance: NICARDIPINE HYDROCHLORIDE
     Indication: HYPERTENSION
     Route: 065
     Dates: start: 20151019
  3. ACTILYSE [Suspect]
     Active Substance: ALTEPLASE
     Indication: ISCHAEMIC STROKE
     Dosage: BOLUS 7MG AND SYRINGE PUMP AT 66MG ON 1HOUR
     Route: 065
  4. ASPEGIC NOURRISSONS [Suspect]
     Active Substance: ASPIRIN LYSINE
     Indication: ISCHAEMIC STROKE
     Dosage: DRIED SUSPENSION SOLUTION
     Route: 048
     Dates: start: 20151019
  5. ACTILYSE [Suspect]
     Active Substance: ALTEPLASE
     Route: 065
     Dates: start: 20151015
  6. LOXEN (FRANCE) [Suspect]
     Active Substance: NICARDIPINE HYDROCHLORIDE
     Dosage: MORNING AND EVENING
     Route: 065
     Dates: start: 20151221
  7. ASPEGIC NOURRISSONS [Suspect]
     Active Substance: ASPIRIN LYSINE
     Dosage: ONCE A DAY FOR 6 WEEKS
     Route: 048
     Dates: start: 20151221

REACTIONS (2)
  - Foetal death [Unknown]
  - Maternal exposure during pregnancy [Unknown]

NARRATIVE: CASE EVENT DATE: 201512
